FAERS Safety Report 6702267-3 (Version None)
Quarter: 2010Q2

REPORT INFORMATION
  Report Type: 
  Country: None (occurrence: None)
  Receive Date: 20100429
  Receipt Date: 20100426
  Transmission Date: 20101027
  Serious: Yes (Life-Threatening, Hospitalization)
  Sender: FDA-Public Use
  Company Number: DE-SANOFI-AVENTIS-A04200900241

PATIENT
  Age: 77 Year
  Sex: Female
  Weight: 95 kg

DRUGS (9)
  1. GLIBENCLAMIDE [Interacting]
     Route: 048
     Dates: start: 20000101, end: 20080727
  2. METFORMIN HYDROCHLORIDE [Interacting]
     Route: 048
     Dates: start: 19950101
  3. FURORESE [Suspect]
     Route: 048
     Dates: start: 20020101, end: 20080808
  4. XIPAMIDE [Suspect]
     Route: 048
     Dates: start: 20000101
  5. METOPROLOL TARTRATE [Concomitant]
     Route: 048
     Dates: start: 19990101
  6. LISINOPRIL [Concomitant]
     Route: 048
     Dates: start: 20030101, end: 20080727
  7. ASS ^CT-ARZNEIMITTEL^ [Concomitant]
     Dosage: UNIT DOSE: 100 UNK
     Route: 048
     Dates: start: 20020101
  8. PANTOZOL [Concomitant]
     Dosage: UNIT DOSE: 40 MG
     Route: 048
     Dates: start: 20060101
  9. SIMVASTATIN [Concomitant]
     Dosage: UNIT DOSE: 40 MG
     Route: 048
     Dates: start: 20020101

REACTIONS (4)
  - CONFUSIONAL STATE [None]
  - DRUG INTERACTION [None]
  - HYPOGLYCAEMIA [None]
  - RENAL FAILURE ACUTE [None]
